FAERS Safety Report 4743806-1 (Version None)
Quarter: 2005Q3

REPORT INFORMATION
  Report Type: 
  Country: None (occurrence: None)
  Receive Date: 20050809
  Receipt Date: 20050510
  Transmission Date: 20060218
  Serious: Yes (Hospitalization)
  Sender: FDA-Public Use
  Company Number: 2005FR-00177

PATIENT
  Age: 31 Year
  Sex: Female

DRUGS (1)
  1. PARACETAMOL [Suspect]
     Route: 048
     Dates: start: 20010101, end: 20010101

REACTIONS (3)
  - HEPATIC FAILURE [None]
  - LIVER TRANSPLANT [None]
  - OVERDOSE [None]
